FAERS Safety Report 4553477-5 (Version None)
Quarter: 2005Q1

REPORT INFORMATION
  Report Type: 
  Country: None (occurrence: None)
  Receive Date: 20050112
  Receipt Date: 20041229
  Transmission Date: 20050727
  Serious: Yes (Other)
  Sender: FDA-Public Use
  Company Number: 2004-DE-06361GD(0)

PATIENT

DRUGS (3)
  1. NEVIRAPINE (NEVIRAPINE) [Suspect]
     Indication: HIV INFECTION
     Dosage: 400 MG
  2. NELFINAVIR (NELFINAVIR) [Suspect]
     Indication: HIV INFECTION
     Dosage: 2500 MG
  3. NRTIS [Suspect]
     Indication: HIV INFECTION

REACTIONS (2)
  - BLOOD HIV RNA INCREASED [None]
  - DRUG INEFFECTIVE [None]
